FAERS Safety Report 7358075-6 (Version None)
Quarter: 2011Q1

REPORT INFORMATION
  Report Type: 
  Country: None (occurrence: None)
  Receive Date: 20110317
  Receipt Date: 20110304
  Transmission Date: 20110831
  Serious: Yes (Hospitalization)
  Sender: FDA-Public Use
  Company Number: PHHY2011MT18057

PATIENT
  Sex: Female

DRUGS (2)
  1. DIOVAN [Suspect]
     Indication: HYPERTENSION
     Route: 048
  2. RASILEZ [Suspect]
     Indication: HYPERTENSION
     Route: 048
     Dates: start: 20090101

REACTIONS (1)
  - LOWER RESPIRATORY TRACT INFECTION [None]
